FAERS Safety Report 13152665 (Version 1)
Quarter: 2017Q1

REPORT INFORMATION
  Report Type: Report from Study
  Country: US (occurrence: US)
  Receive Date: 20170125
  Receipt Date: 20170125
  Transmission Date: 20170428
  Serious: Yes (Hospitalization)
  Sender: FDA-Public Use
  Company Number: US-BRISTOL-MYERS SQUIBB COMPANY-BMS-2016-069695

PATIENT
  Age: 72 Year
  Sex: Female
  Weight: 42.54 kg

DRUGS (1)
  1. DASATINIB [Suspect]
     Active Substance: DASATINIB
     Indication: NEOPLASM
     Dosage: 240 MG, UNK
     Route: 048
     Dates: start: 20160810, end: 20160813

REACTIONS (1)
  - Flank pain [Recovering/Resolving]

NARRATIVE: CASE EVENT DATE: 20160811
